FAERS Safety Report 8486415-3 (Version None)
Quarter: 2012Q3

REPORT INFORMATION
  Report Type: 
  Country: None (occurrence: None)
  Receive Date: 20120703
  Receipt Date: 20120629
  Transmission Date: 20120928
  Serious: Yes (Other)
  Sender: FDA-Public Use
  Company Number: US-PFIZER INC-2012157017

PATIENT
  Sex: Female
  Weight: 90.703 kg

DRUGS (2)
  1. CARDIZEM [Concomitant]
     Indication: HYPERTENSION
     Dosage: 240 MG, DAILY
  2. LYRICA [Suspect]
     Indication: NEUROPATHY PERIPHERAL
     Dosage: 150 MG, DAILY
     Dates: end: 20120628

REACTIONS (5)
  - FALL [None]
  - ARTHRITIS [None]
  - BURSITIS [None]
  - TENDONITIS [None]
  - LIGAMENT SPRAIN [None]
